FAERS Safety Report 4683997-4 (Version None)
Quarter: 2005Q2

REPORT INFORMATION
  Report Type: 
  Country: None (occurrence: None)
  Receive Date: 20050607
  Receipt Date: 20050513
  Transmission Date: 20051028
  Serious: Yes (Hospitalization, Other)
  Sender: FDA-Public Use
  Company Number: US-GLAXOSMITHKLINE-A0560063A

PATIENT
  Age: 29 Year
  Sex: Female
  Weight: 87 kg

DRUGS (8)
  1. BC HEADACHE POWDER [Suspect]
     Indication: MIGRAINE
     Route: 048
     Dates: start: 19840101
  2. STANBACK HEADACHE POWDER [Suspect]
     Indication: MIGRAINE
     Route: 048
  3. PREVACID [Concomitant]
  4. ASPIRIN [Concomitant]
     Indication: MIGRAINE
  5. LIPITOR [Concomitant]
     Indication: BLOOD CHOLESTEROL INCREASED
  6. IMITREX [Concomitant]
     Indication: MIGRAINE
  7. INDERAL [Concomitant]
  8. NAPROXEN [Concomitant]
     Indication: UTERINE LEIOMYOMA

REACTIONS (3)
  - DIABETES MELLITUS [None]
  - HYPERTENSION [None]
  - MIGRAINE [None]
